FAERS Safety Report 9492716 (Version 1)
Quarter: 2013Q3

REPORT INFORMATION
  Report Type: Spontaneous
  Country: US (occurrence: US)
  Receive Date: 20130830
  Receipt Date: 20130830
  Transmission Date: 20140515
  Serious: No
  Sender: FDA-Public Use
  Company Number: US-PFIZER INC-2013247618

PATIENT
  Age: 84 Year
  Sex: Female
  Weight: 63.49 kg

DRUGS (1)
  1. PREMARIN [Suspect]
     Indication: BLADDER PROLAPSE
     Dosage: 0.5 G, 2 TO 3 TIMES A WEEK
     Route: 067
     Dates: start: 200808

REACTIONS (1)
  - Blood cholesterol increased [Unknown]
